FAERS Safety Report 19493227 (Version 4)
Quarter: 2021Q4

REPORT INFORMATION
  Report Type: Spontaneous
  Country: US (occurrence: US)
  Receive Date: 20210705
  Receipt Date: 20211227
  Transmission Date: 20220303
  Serious: Yes (Other)
  Sender: FDA-Public Use
  Company Number: US-PFIZER INC-2021749668

PATIENT
  Age: 64 Year
  Sex: Female

DRUGS (1)
  1. NORPACE [Suspect]
     Active Substance: DISOPYRAMIDE PHOSPHATE
     Indication: Sinus rhythm
     Dosage: 100 MG, 3X/DAY

REACTIONS (2)
  - Atrial fibrillation [Unknown]
  - Therapeutic product effect incomplete [Unknown]
